FAERS Safety Report 8479543-X (Version None)
Quarter: 2012Q2

REPORT INFORMATION
  Report Type: 
  Country: None (occurrence: None)
  Receive Date: 20120629
  Receipt Date: 20120621
  Transmission Date: 20120825
  Serious: Yes (Hospitalization)
  Sender: FDA-Public Use
  Company Number: JP-PFIZER INC-2012153560

PATIENT
  Age: 24 Year
  Sex: Female
  Weight: 50 kg

DRUGS (3)
  1. FOSPHENYTOIN SODIUM [Suspect]
     Indication: EPILEPSY
     Dosage: 1125 MG, 1X/DAY
     Route: 042
     Dates: start: 20120618
  2. PHENYTOIN [Concomitant]
     Indication: EPILEPSY
     Dosage: UNK
     Dates: start: 20120618
  3. FOSPHENYTOIN SODIUM [Suspect]
     Dosage: 180 MG, 2X/DAY
     Route: 042
     Dates: start: 20120619, end: 20120619

REACTIONS (1)
  - RHABDOMYOLYSIS [None]
